FAERS Safety Report 4340280-4 (Version None)
Quarter: 2004Q2

REPORT INFORMATION
  Report Type: 
  Country: None (occurrence: None)
  Receive Date: 20040412
  Receipt Date: 20040402
  Transmission Date: 20050107
  Serious: Yes (Other)
  Sender: FDA-Public Use
  Company Number: 2004-04-0053

PATIENT
  Age: 53 Year
  Sex: Male

DRUGS (2)
  1. TEMODAL [Suspect]
     Indication: GLIOMA
     Dosage: 75 MG/M2 QD ORAL
     Route: 048
     Dates: start: 20040301
  2. DEPAKENE [Concomitant]

REACTIONS (1)
  - DEAFNESS NEUROSENSORY [None]
